FAERS Safety Report 4332409-9 (Version None)
Quarter: 2004Q2

REPORT INFORMATION
  Report Type: 
  Country: None (occurrence: None)
  Receive Date: 20040401
  Receipt Date: 20040325
  Transmission Date: 20050107
  Serious: Yes (Hospitalization)
  Sender: FDA-Public Use
  Company Number: 2004-02-0298

PATIENT
  Age: 51 Year
  Sex: Male
  Weight: 60 kg

DRUGS (6)
  1. REBETOL [Suspect]
     Indication: HEPATITIS C
     Dosage: 800 MG QD ORAL
     Route: 048
     Dates: start: 20031212, end: 20040129
  2. INTRON A [Suspect]
     Indication: HEPATITIS C
     Dosage: 10-3 MU QD,TIW, INTRAMUSCLAR; 6 MU TIW INTRAMUSCULAR; 3 MU TIW INTRAMUSCULAR
     Route: 030
     Dates: start: 20031212, end: 20031227
  3. INTRON A [Suspect]
     Indication: HEPATITIS C
     Dosage: 10-3 MU QD,TIW, INTRAMUSCLAR; 6 MU TIW INTRAMUSCULAR; 3 MU TIW INTRAMUSCULAR
     Route: 030
     Dates: end: 20040121
  4. INTRON A [Suspect]
     Indication: HEPATITIS C
     Dosage: 10-3 MU QD,TIW, INTRAMUSCLAR; 6 MU TIW INTRAMUSCULAR; 3 MU TIW INTRAMUSCULAR
     Route: 030
     Dates: start: 20040123, end: 20040128
  5. INTRON A [Suspect]
     Indication: HEPATITIS C
     Dosage: 10-3 MU QD,TIW, INTRAMUSCLAR; 6 MU TIW INTRAMUSCULAR; 3 MU TIW INTRAMUSCULAR
     Route: 030
     Dates: start: 20031212, end: 20040129
  6. LANSOPRAZOLE [Concomitant]

REACTIONS (4)
  - AGRANULOCYTOSIS [None]
  - ANOREXIA [None]
  - MALAISE [None]
  - PYREXIA [None]
